FAERS Safety Report 7114715-8 (Version None)
Quarter: 2010Q4

REPORT INFORMATION
  Report Type: 
  Country: None (occurrence: None)
  Receive Date: 20101122
  Receipt Date: 20101115
  Transmission Date: 20110411
  Serious: No
  Sender: FDA-Public Use
  Company Number: US-BIOGENIDEC-2010BI040166

PATIENT
  Age: 29 Year
  Sex: Male

DRUGS (1)
  1. AVONEX [Suspect]
     Indication: MULTIPLE SCLEROSIS
     Route: 030
     Dates: start: 20100301

REACTIONS (7)
  - ANXIETY [None]
  - COUGH [None]
  - DRY THROAT [None]
  - EAR DISORDER [None]
  - FATIGUE [None]
  - IRRITABILITY [None]
  - OROPHARYNGEAL PAIN [None]
